FAERS Safety Report 8935341 (Version 1)
Quarter: 2012Q4

REPORT INFORMATION
  Report Type: Spontaneous
  Country: US (occurrence: None)
  Receive Date: 20121127
  Receipt Date: 20121127
  Transmission Date: 20130627
  Serious: Yes (Other)
  Sender: FDA-Public Use
  Company Number: None

PATIENT
  Age: 5 Year
  Sex: Male
  Weight: 13.83 kg

DRUGS (2)
  1. SINGULAR [Suspect]
     Indication: MULTIPLE ALLERGIES
     Dates: start: 20120903
  2. SINGULAR [Suspect]
     Indication: ASTHMA
     Dates: start: 20120903

REACTIONS (2)
  - Sleep terror [None]
  - Product substitution issue [None]
